FAERS Safety Report 15524957 (Version 5)
Quarter: 2020Q2

REPORT INFORMATION
  Report Type: Report from Study
  Country: DE (occurrence: DE)
  Receive Date: 20181019
  Receipt Date: 20200522
  Transmission Date: 20200713
  Serious: Yes (Hospitalization)
  Sender: FDA-Public Use
  Company Number: DE-PFIZER INC-2018392615

PATIENT
  Age: 58 Year
  Sex: Female
  Weight: 74 kg

DRUGS (23)
  1. AVELUMAB [Suspect]
     Active Substance: AVELUMAB
     Indication: CARCINOID TUMOUR OF THE CAECUM
     Dosage: 730 MG, UNK
     Route: 042
     Dates: start: 20180423
  2. ENOXAPARIN [Concomitant]
     Active Substance: ENOXAPARIN
     Indication: THROMBOSIS PROPHYLAXIS
     Dosage: 0.4 ML, 1X/DAY
     Dates: start: 20180815
  3. DIMETINDENE [Concomitant]
     Active Substance: DIMETHINDENE
     Indication: PREMEDICATION
     Dosage: 4 MG, CYCLIC (EVERY OTHER CYCLE)
     Dates: start: 20180918
  4. METRONIDAZOL [Concomitant]
     Active Substance: METRONIDAZOLE
     Indication: PROPHYLAXIS OF NAUSEA AND VOMITING
     Dosage: 50 MG, EVERY OTHER CYCLE (ONCE DAILY)
     Dates: start: 20180616
  5. OXALIPLATIN. [Suspect]
     Active Substance: OXALIPLATIN
     Indication: CARCINOID TUMOUR OF THE CAECUM
     Dosage: 153 MG, UNK
     Route: 042
     Dates: start: 20180409
  6. CETUXIMAB. [Suspect]
     Active Substance: CETUXIMAB
     Dosage: 450 MG
     Route: 042
     Dates: start: 20180918
  7. PALONOSETRON. [Concomitant]
     Active Substance: PALONOSETRON HYDROCHLORIDE
     Indication: PREMEDICATION
     Dosage: 0.25 MG, CYCLIC (EVERY OTHER CYCLE)
     Dates: start: 20180918
  8. APREPITANT. [Concomitant]
     Active Substance: APREPITANT
     Indication: PROPHYLAXIS OF NAUSEA AND VOMITING
     Dosage: 80 MG, 1X/DAY
     Dates: start: 20180918
  9. 5-FU [Suspect]
     Active Substance: FLUOROURACIL
     Indication: CARCINOID TUMOUR OF THE CAECUM
     Dosage: 153 MG, UNK
     Route: 042
     Dates: start: 20180409, end: 20180918
  10. AMLODIPINE [Concomitant]
     Active Substance: AMLODIPINE BESYLATE
     Dosage: 2.5 MG, 1X/DAY
     Dates: start: 201710
  11. APREPITANT. [Concomitant]
     Active Substance: APREPITANT
     Indication: PREMEDICATION
     Dosage: 125 MG, CYCLIC (EVERY OTHER CYCLE)
     Dates: start: 20180918
  12. AVELUMAB [Suspect]
     Active Substance: AVELUMAB
     Dosage: 730 MG
     Route: 042
     Dates: start: 20180918
  13. CETIRIZINE [Concomitant]
     Active Substance: CETIRIZINE HYDROCHLORIDE
     Dosage: 10 MG, 1X/DAY
     Dates: start: 20180716
  14. CETUXIMAB. [Suspect]
     Active Substance: CETUXIMAB
     Indication: CARCINOID TUMOUR OF THE CAECUM
     Dosage: 450 MG, UNK
     Route: 042
     Dates: start: 20180409
  15. METRONIDAZOL [Concomitant]
     Active Substance: METRONIDAZOLE
     Dosage: 80 MG, 1X/DAY
     Dates: start: 20180918
  16. LEUCOVORIN. [Suspect]
     Active Substance: LEUCOVORIN
     Indication: CARCINOID TUMOUR OF THE CAECUM
     Dosage: 721 MG, UNK
     Route: 042
     Dates: start: 20180409, end: 20180918
  17. LEUCOVORIN. [Suspect]
     Active Substance: LEUCOVORIN
     Dosage: 721 MG, UNK
     Route: 042
     Dates: start: 20181009
  18. 5-FU [Suspect]
     Active Substance: FLUOROURACIL
     Dosage: 153 MG, UNK
     Route: 042
     Dates: start: 20181009
  19. DEXAMETHASONE. [Concomitant]
     Active Substance: DEXAMETHASONE
     Indication: PREMEDICATION
     Dosage: 8 MG, CYCLIC (EVERY OTHER CYCLE)
     Dates: start: 20180918
  20. RAMIPRIL. [Concomitant]
     Active Substance: RAMIPRIL
     Dosage: 2.5 MG, 1X/DAY
     Dates: start: 201710
  21. PANTOPRAZOLE [Concomitant]
     Active Substance: PANTOPRAZOLE
     Indication: PROPHYLAXIS
     Dosage: 40 MG, 2X/DAY
     Dates: start: 20180315
  22. PARACETAMOL [Concomitant]
     Active Substance: ACETAMINOPHEN
     Indication: PREMEDICATION
     Dosage: 1000 MG, EVERY OTHER CYCLE
     Route: 048
     Dates: start: 20180918
  23. LOPERAMIDE HYDROCHLORIDE. [Concomitant]
     Active Substance: LOPERAMIDE HYDROCHLORIDE
     Indication: DIARRHOEA
     Dosage: 2 MG, AS NEEDED
     Dates: start: 20180412

REACTIONS (1)
  - Diarrhoea [Recovered/Resolved]

NARRATIVE: CASE EVENT DATE: 20180918
